FAERS Safety Report 9299171 (Version 2)
Quarter: 2013Q2

REPORT INFORMATION
  Report Type: Report from Study
  Country: MX (occurrence: MX)
  Receive Date: 20130520
  Receipt Date: 20130627
  Transmission Date: 20140414
  Serious: Yes (Hospitalization)
  Sender: FDA-Public Use
  Company Number: MX-ABBOTT-13P-107-1091488-00

PATIENT
  Age: 65 Year
  Sex: Male
  Weight: 75 kg

DRUGS (10)
  1. HUMIRA [Suspect]
     Indication: RHEUMATOID ARTHRITIS
     Route: 058
     Dates: start: 201010
  2. GALVUZNET [Concomitant]
     Indication: DIABETES MELLITUS
     Route: 048
  3. GLIMETAL [Concomitant]
     Indication: DIABETES MELLITUS
     Dosage: 4MG/1000MG
     Route: 048
  4. LYRICA [Concomitant]
     Indication: NEUROPATHY PERIPHERAL
     Route: 048
  5. VYOTEIN [Concomitant]
     Indication: BLOOD TRIGLYCERIDES
     Dosage: 10MG/20MG
     Route: 048
  6. NUCLEO CMP FORTE [Concomitant]
     Indication: NEUROPATHY PERIPHERAL
     Dosage: 5MG/3MG
     Route: 048
  7. ELATEC [Concomitant]
     Indication: VENOUS INSUFFICIENCY
     Route: 048
  8. DISLEP [Concomitant]
     Indication: GASTRIC DISORDER
     Route: 048
  9. LIBERTRIN [Concomitant]
     Indication: GASTRIC DISORDER
     Dosage: 200MG/75MG
     Route: 048
  10. ULSEN [Concomitant]
     Indication: GASTRIC DISORDER
     Route: 048

REACTIONS (3)
  - Scleritis [Recovered/Resolved]
  - Eye swelling [Recovered/Resolved]
  - Eye irritation [Recovered/Resolved]
